FAERS Safety Report 4431045-3 (Version None)
Quarter: 2004Q3

REPORT INFORMATION
  Report Type: 
  Country: None (occurrence: None)
  Receive Date: 20040824
  Receipt Date: 20031217
  Transmission Date: 20050211
  Serious: No
  Sender: FDA-Public Use
  Company Number: US-BRISTOL-MYERS SQUIBB COMPANY-12461414

PATIENT
  Age: 47 Year
  Sex: Female
  Weight: 66 kg

DRUGS (2)
  1. LAC-HYDRIN [Suspect]
     Indication: DRY SKIN
     Dosage: RECEIPT STATED EXP DATE WAS 02-SEP-2004.
     Route: 061
     Dates: start: 20030902, end: 20030904
  2. CELEBREX [Concomitant]

REACTIONS (2)
  - BURNING SENSATION [None]
  - PAIN [None]
